FAERS Safety Report 9928697 (Version 1)
Quarter: 2014Q1

REPORT INFORMATION
  Report Type: Report from Study
  Country: CA (occurrence: CA)
  Receive Date: 20140227
  Receipt Date: 20140227
  Transmission Date: 20141002
  Serious: Yes (Other)
  Sender: FDA-Public Use
  Company Number: CA-JNJFOC-20140213979

PATIENT
  Sex: Female
  Weight: 68.6 kg

DRUGS (4)
  1. REMICADE [Suspect]
     Indication: CROHN^S DISEASE
     Route: 042
     Dates: start: 20120831
  2. METHOTREXATE [Concomitant]
     Route: 048
  3. VENTOLIN [Concomitant]
     Route: 065
  4. FLORENT [Concomitant]
     Route: 065

REACTIONS (1)
  - Anal abscess [Recovered/Resolved]
